FAERS Safety Report 5272550-X (Version None)
Quarter: 2007Q1

REPORT INFORMATION
  Report Type: 
  Country: None (occurrence: None)
  Receive Date: 20070320
  Receipt Date: 20070320
  Transmission Date: 20070707
  Serious: No
  Sender: FDA-Public Use
  Company Number: None

PATIENT
  Age: 45 Year
  Sex: Female
  Weight: 52.1637 kg

DRUGS (4)
  1. RISPERDAL [Suspect]
     Indication: BIPOLAR DISORDER
     Dosage: 1 ML.  1 PER DAY
     Dates: start: 20050909, end: 20060515
  2. CYMBALTA [Suspect]
     Dosage: 60 ML. 1 PER DAY LATER 2
     Dates: start: 20051215, end: 20060515
  3. . [Concomitant]
  4. . [Concomitant]

REACTIONS (2)
  - SUICIDAL BEHAVIOUR [None]
  - SUICIDAL IDEATION [None]
